FAERS Safety Report 5925314-5 (Version None)
Quarter: 2008Q4

REPORT INFORMATION
  Report Type: 
  Country: None (occurrence: None)
  Receive Date: 20081021
  Receipt Date: 20081009
  Transmission Date: 20090506
  Serious: Yes (Other)
  Sender: FDA-Public Use
  Company Number: FI-ELI_LILLY_AND_COMPANY-FI200810002342

PATIENT
  Age: 62 Year
  Sex: Female

DRUGS (3)
  1. CYMBALTA [Suspect]
     Indication: NEURALGIA
     Dosage: 30 MG, DAILY (1/D)
     Route: 048
     Dates: start: 20080819
  2. CYMBALTA [Suspect]
     Dosage: 60 MG, DAILY (1/D)
     Route: 048
     Dates: start: 20080901
  3. DISOFROL [Concomitant]
     Indication: ARRHYTHMIA
     Dosage: 2 X 0,5 TABLETS
     Route: 048

REACTIONS (3)
  - ARRHYTHMIA [None]
  - DYSURIA [None]
  - HYPERHIDROSIS [None]
